FAERS Safety Report 9036129 (Version 1)
Quarter: 2013Q1

REPORT INFORMATION
  Report Type: Report from Study
  Country: US (occurrence: US)
  Receive Date: 20130129
  Receipt Date: 20130129
  Transmission Date: 20140127
  Serious: No
  Sender: FDA-Public Use
  Company Number: US-ABBOTT-12P-163-0923613-00

PATIENT
  Age: 73 Year
  Sex: Female

DRUGS (19)
  1. HUMIRA 40 MG/0.8 ML PEN [Suspect]
     Indication: PSORIASIS
     Dosage: LOADING DOSE
     Dates: start: 20120403, end: 20120403
  2. HUMIRA 40 MG/0.8 ML PEN [Suspect]
  3. PAROXETINE [Concomitant]
     Indication: ANXIETY
  4. PAROXETINE [Concomitant]
     Indication: SLEEP DISORDER THERAPY
  5. LEVOTHYROXINE [Concomitant]
     Indication: HYPOTHYROIDISM
  6. NYSTATIN [Concomitant]
     Indication: FUNGAL SKIN INFECTION
     Dosage: UP TO 3 TIMES A DAY
  7. OYST-CAL [Concomitant]
     Indication: PRODUCT USED FOR UNKNOWN INDICATION
  8. LISINOPRIL [Concomitant]
     Indication: HYPERTENSION
  9. METFORMIN [Concomitant]
     Indication: DIABETES MELLITUS
  10. FUROSEMIDE [Concomitant]
     Indication: PRODUCT USED FOR UNKNOWN INDICATION
  11. FAMOTIDINE [Concomitant]
     Indication: GASTROOESOPHAGEAL REFLUX DISEASE
  12. SINGULAIR [Concomitant]
     Indication: ASTHMA
     Dosage: AT BED TIME
  13. ADVAIR [Concomitant]
     Indication: ASTHMA
     Dosage: 500/50 TWICE A DAY
  14. XOPENEX [Concomitant]
     Indication: ASTHMA
     Dosage: TWICE A DAY, AS NEEDED
  15. POTASSIUM [Concomitant]
     Indication: PRODUCT USED FOR UNKNOWN INDICATION
  16. BETAMETHASONE [Concomitant]
     Indication: PSORIASIS
     Dosage: AFTER USING DOVONEX
  17. DOVONEX [Concomitant]
     Indication: PSORIASIS
  18. CALCIUM + VITAMIN D [Concomitant]
     Indication: PRODUCT USED FOR UNKNOWN INDICATION
     Dosage: 600MG, 2 TABS A DAY
  19. CLOBETASOL 0.05% [Concomitant]
     Indication: PSORIASIS

REACTIONS (2)
  - Injection site bruising [Not Recovered/Not Resolved]
  - Injection site pain [Not Recovered/Not Resolved]
